FAERS Safety Report 8221758-X (Version None)
Quarter: 2012Q1

REPORT INFORMATION
  Report Type: 
  Country: None (occurrence: None)
  Receive Date: 20120320
  Receipt Date: 20120320
  Transmission Date: 20120608
  Serious: Yes (Other)
  Sender: FDA-Public Use
  Company Number: None

PATIENT
  Age: 17 Year
  Sex: Female
  Weight: 611.44 kg

DRUGS (1)
  1. ORTHO TRI-CYCLEN [Suspect]
     Indication: DYSMENORRHOEA
     Route: 048
     Dates: start: 20100527, end: 20120319

REACTIONS (1)
  - MENSTRUAL DISORDER [None]
